FAERS Safety Report 21780168 (Version 1)
Quarter: 2022Q4

REPORT INFORMATION
  Report Type: Spontaneous
  Country: CH (occurrence: CH)
  Receive Date: 20221226
  Receipt Date: 20221226
  Transmission Date: 20230112
  Serious: Yes (Hospitalization, Other)
  Sender: FDA-Public Use
  Company Number: CH-SM-2022-20671

PATIENT
  Age: 64 Year
  Sex: Female

DRUGS (13)
  1. VANCOCIN [Suspect]
     Active Substance: VANCOMYCIN HYDROCHLORIDE
     Indication: Product used for unknown indication
     Dosage: VANCOCIN  (VANCOMYCIN)  1.2-1.5G 1-2X/DAY INTRAVENOUS APPLICATION
     Route: 042
     Dates: start: 20221008, end: 20221013
  2. DAFALGAN [Suspect]
     Active Substance: ACETAMINOPHEN
     Indication: Product used for unknown indication
     Dosage: 3 GRAM DAILY; DAFALGAN  (PARACETAMOL)
     Route: 048
     Dates: start: 20221004, end: 20221006
  3. IBUPROFEN [Suspect]
     Active Substance: IBUPROFEN
     Indication: Product used for unknown indication
     Dosage: IBUPROFEN (EXACT PREPARATION UNKNOWN) 600 MG UP TO 3X/DAY
     Route: 048
     Dates: start: 20221004, end: 20221006
  4. FLUIMUCIL [Suspect]
     Active Substance: ACETYLCYSTEINE
     Indication: Product used for unknown indication
     Dosage: FLUIMUCIL  (ACETYLCYSTEINE) ACCORDING TO THE PRESCOTT SCHEME, NO FURTHER DETAILS AVAILABLE
     Route: 065
     Dates: start: 20221007, end: 20221007
  5. EUTHYROX [Concomitant]
     Active Substance: LEVOTHYROXINE SODIUM
     Indication: Product used for unknown indication
     Dosage: 100 MICROGRAM DAILY; EUTHYROX  (LEVOTHYROXIN) 100 MCG 1-0-0-0
     Route: 048
  6. VENLAFAXINE HYDROCHLORIDE [Concomitant]
     Active Substance: VENLAFAXINE HYDROCHLORIDE
     Indication: Product used for unknown indication
     Dosage: VENLAFAXINE (EXACT PREPARATION NOT KNOWN) 75 MG STOPPED ON HOSPITAL ADMISSION ON OCTOBER 7TH, 2022
     Route: 048
     Dates: end: 20221007
  7. METFORMIN HYDROCHLORIDE [Concomitant]
     Active Substance: METFORMIN HYDROCHLORIDE
     Indication: Product used for unknown indication
     Dosage: 1000 MILLIGRAM DAILY; METFIN  (METFORMIN) 1000 MG 0-0-1, STOPPED WHEN ADMITTED TO THE HOSPITAL ON OC
     Route: 048
     Dates: end: 20221007
  8. JANUMET [Concomitant]
     Active Substance: METFORMIN HYDROCHLORIDE\SITAGLIPTIN PHOSPHATE
     Indication: Product used for unknown indication
     Dosage: 1 DOSAGE FORMS DAILY; JANUMET  (SITAGLIPTIN / METFORMIN) 1-0-0-0, STOPPED AT HOSPITAL ADMISSION ON O
     Route: 048
     Dates: end: 20221007
  9. METOPROLOL SUCCINATE [Concomitant]
     Active Substance: METOPROLOL SUCCINATE
     Indication: Product used for unknown indication
     Dosage: 75 MILLIGRAM DAILY; METO ZEROK  (METOPROLOL) 75 MG 1-0-0, STOPPED AT HOSPITAL ADMISSION ON 07.10.202
     Route: 048
     Dates: end: 20221007
  10. CLOMIPRAMINE [Concomitant]
     Active Substance: CLOMIPRAMINE
     Indication: Product used for unknown indication
     Dosage: 75 MILLIGRAM DAILY; ANAFRIL  SR (CLOMIPRAMINE) 75MG 1-0-0, STOPPED AT HOSPITAL ADMISSION ON OCTOBER
     Route: 048
     Dates: end: 20221007
  11. PANTOPRAZOLE SODIUM [Concomitant]
     Active Substance: PANTOPRAZOLE SODIUM
     Indication: Product used for unknown indication
     Dosage: 40 MILLIGRAM DAILY; PANTOPRAZOLE 40 MG 1-0-0, STOPPED WHEN I WAS ADMITTED TO THE HOSPITAL ON OCTOBER
     Route: 048
     Dates: end: 20221007
  12. EXFORGE [Concomitant]
     Active Substance: AMLODIPINE BESYLATE\VALSARTAN
     Indication: Product used for unknown indication
     Dosage: EXFORGE  (AMLODIPINE / VALSARTAN), STOPPED AT HOSPITAL ADMISSION ON OCTOBER 7TH, 2022, CONTINUED WIT
     Route: 048
     Dates: end: 20221007
  13. CALCIUM CARBONATE\CHOLECALCIFEROL [Concomitant]
     Active Substance: CALCIUM CARBONATE\CHOLECALCIFEROL
     Indication: Product used for unknown indication
     Dosage: KALCIPOS -D3 (CALCIUM / VITAMIN D3) 500 MG / 800 IU, STOPPED AT HOSPITAL ADMISSION ON OCTOBER 7TH, 2
     Route: 048
     Dates: end: 20221007

REACTIONS (3)
  - Drug-induced liver injury [Recovering/Resolving]
  - Anaphylactoid reaction [Unknown]
  - Acute kidney injury [Recovering/Resolving]

NARRATIVE: CASE EVENT DATE: 20221006
